FAERS Safety Report 5525222-8 (Version None)
Quarter: 2007Q4

REPORT INFORMATION
  Report Type: 
  Country: None (occurrence: None)
  Receive Date: 20071126
  Receipt Date: 20071114
  Transmission Date: 20080405
  Serious: Yes (Hospitalization)
  Sender: FDA-Public Use
  Company Number: FR-ROCHE-532177

PATIENT
  Age: 72 Year
  Sex: Male

DRUGS (4)
  1. ROCEPHIN [Suspect]
     Route: 042
     Dates: start: 20070717, end: 20070722
  2. PREVISCAN [Interacting]
     Indication: DRUG USE FOR UNKNOWN INDICATION
     Route: 048
     Dates: end: 20070719
  3. ZITHROMAX [Interacting]
     Route: 048
     Dates: start: 20070717, end: 20070722
  4. KARDEGIC [Interacting]
     Indication: DRUG USE FOR UNKNOWN INDICATION
     Route: 048
     Dates: end: 20070719

REACTIONS (3)
  - DRUG INTERACTION [None]
  - INTERNATIONAL NORMALISED RATIO INCREASED [None]
  - SUBDURAL HAEMATOMA [None]
